FAERS Safety Report 14982342 (Version 4)
Quarter: 2018Q4

REPORT INFORMATION
  Report Type: Report from Study
  Country: None (occurrence: US)
  Receive Date: 20180607
  Receipt Date: 20181226
  Transmission Date: 20190204
  Serious: Yes (Hospitalization, Other)
  Sender: FDA-Public Use
  Company Number: US-ABBVIE-18K-163-2377465-00

PATIENT
  Age: 62 Year
  Sex: Male
  Weight: 97.61 kg

DRUGS (3)
  1. HUMIRA [Suspect]
     Active Substance: ADALIMUMAB
     Route: 058
     Dates: start: 20180706, end: 2018
  2. OPIOIDS [Concomitant]
     Active Substance: UNSPECIFIED INGREDIENT
     Indication: PRODUCT USED FOR UNKNOWN INDICATION
  3. HUMIRA [Suspect]
     Active Substance: ADALIMUMAB
     Indication: PSORIASIS
     Route: 058
     Dates: start: 20161229, end: 201709

REACTIONS (17)
  - Toxicity to various agents [Not Recovered/Not Resolved]
  - Arthropathy [Unknown]
  - Leg amputation [Unknown]
  - Dementia Alzheimer^s type [Unknown]
  - Stubbornness [Unknown]
  - Memory impairment [Unknown]
  - Injection site pain [Recovered/Resolved]
  - Poisoning [Not Recovered/Not Resolved]
  - Bone development abnormal [Unknown]
  - Apparent death [Unknown]
  - Road traffic accident [Recovered/Resolved]
  - Anger [Unknown]
  - Fall [Unknown]
  - Psoriasis [Not Recovered/Not Resolved]
  - Road traffic accident [Not Recovered/Not Resolved]
  - Road traffic accident [Recovered/Resolved with Sequelae]
  - Injection site pain [Unknown]

NARRATIVE: CASE EVENT DATE: 2018
